FAERS Safety Report 4406435-5 (Version None)
Quarter: 2004Q3

REPORT INFORMATION
  Report Type: 
  Country: None (occurrence: None)
  Receive Date: 20040723
  Receipt Date: 20030801
  Transmission Date: 20050211
  Serious: No
  Sender: FDA-Public Use
  Company Number: US-GLAXOSMITHKLINE-A0419212A

PATIENT
  Age: 63 Year
  Sex: Female

DRUGS (6)
  1. AVANDIA [Suspect]
     Dosage: 4MG PER DAY
     Route: 048
     Dates: start: 20030701
  2. ZETIA [Concomitant]
  3. TOPROL-XL [Concomitant]
  4. ZOCOR [Concomitant]
  5. COZAAR [Concomitant]
  6. DYNACIRC [Concomitant]

REACTIONS (4)
  - ARTHRALGIA [None]
  - EYE SWELLING [None]
  - PRURITUS GENERALISED [None]
  - RASH PAPULAR [None]
